FAERS Safety Report 7077908-4 (Version None)
Quarter: 2010Q4

REPORT INFORMATION
  Report Type: 
  Country: None (occurrence: None)
  Receive Date: 20101101
  Receipt Date: 20101014
  Transmission Date: 20110411
  Serious: Yes (Other)
  Sender: FDA-Public Use
  Company Number: PHHY2010AR68760

PATIENT
  Age: 9 Year
  Sex: Male

DRUGS (6)
  1. CLOZAPINE [Suspect]
     Indication: PSYCHOTIC DISORDER
     Dosage: 125 MG, QD
     Dates: start: 20100909
  2. CHLORPROMAZINE [Suspect]
     Dosage: UNK
  3. QUETIAPINE [Concomitant]
  4. VALPROIC ACID [Concomitant]
  5. OLANZAPINE [Concomitant]
  6. LEVOMEPROMAZINE [Concomitant]
     Dosage: UNK

REACTIONS (5)
  - AGGRESSION [None]
  - PARAESTHESIA [None]
  - PSYCHIATRIC DECOMPENSATION [None]
  - PSYCHOMOTOR HYPERACTIVITY [None]
  - SALIVARY HYPERSECRETION [None]
